FAERS Safety Report 13071948 (Version 1)
Quarter: 2016Q4

REPORT INFORMATION
  Report Type: Spontaneous
  Country: US (occurrence: US)
  Receive Date: 20161228
  Receipt Date: 20161228
  Transmission Date: 20170207
  Serious: Yes (Life-Threatening, Hospitalization, Disabling, Other)
  Sender: FDA-Public Use
  Company Number: None

PATIENT
  Age: 85 Year
  Sex: Male
  Weight: 108 kg

DRUGS (1)
  1. COMFORT SHIELD BARRIER [Suspect]
     Active Substance: DIMETHICONE
     Indication: ROUTINE HEALTH MAINTENANCE
     Route: 061
     Dates: start: 20140706, end: 20160605

REACTIONS (2)
  - Product use issue [None]
  - Drug dispensing error [None]

NARRATIVE: CASE EVENT DATE: 20160515
